FAERS Safety Report 7166932-9 (Version None)
Quarter: 2010Q4

REPORT INFORMATION
  Report Type: 
  Country: None (occurrence: None)
  Receive Date: 20101213
  Receipt Date: 20101213
  Transmission Date: 20110411
  Serious: Yes (Hospitalization)
  Sender: FDA-Public Use
  Company Number: None

PATIENT
  Sex: Male
  Weight: 87 kg

DRUGS (2)
  1. CISPLATIN [Suspect]
     Dosage: 75 MG
     Dates: end: 20101115
  2. GEMCITABINE HCL [Suspect]
     Dosage: 4800 MG
     Dates: end: 20101122

REACTIONS (9)
  - ANAEMIA [None]
  - BACTERIAL TEST POSITIVE [None]
  - CAROTID ARTERY OCCLUSION [None]
  - CAROTID ARTERY STENOSIS [None]
  - CEREBRAL INFARCTION [None]
  - EMBOLIC STROKE [None]
  - LEUKOPENIA [None]
  - PYREXIA [None]
  - VERTEBRAL ARTERY OCCLUSION [None]
